FAERS Safety Report 4830009-5 (Version None)
Quarter: 2005Q4

REPORT INFORMATION
  Report Type: 
  Country: None (occurrence: None)
  Receive Date: 20051114
  Receipt Date: 20050930
  Transmission Date: 20060501
  Serious: Yes (Death)
  Sender: FDA-Public Use
  Company Number: 2005AL004058

PATIENT
  Age: 25 Year
  Sex: 0

DRUGS (3)
  1. PROPOXYPHENE HYDROCHLORIDE W/ACETAMINOPHEN TAB [Suspect]
  2. ETHANOL [Suspect]
  3. COCAINE [Suspect]

REACTIONS (2)
  - COMPLETED SUICIDE [None]
  - MULTIPLE DRUG OVERDOSE INTENTIONAL [None]
